FAERS Safety Report 9305537 (Version 1)
Quarter: 2013Q3

REPORT INFORMATION
  Report Type: Spontaneous
  Country: US (occurrence: None)
  Receive Date: 20130522
  Receipt Date: 20130522
  Transmission Date: 20140515
  Serious: Yes (Hospitalization)
  Sender: FDA-Public Use
  Company Number: None

PATIENT
  Age: 43 Year
  Sex: Male
  Weight: 98.7 kg

DRUGS (2)
  1. CYTOXAN [Suspect]
     Indication: METASTATIC MALIGNANT MELANOMA
     Dosage: 675 MG PO EVERY 3 WKS D1
     Route: 048
     Dates: start: 20130506
  2. IPILIMUMAB [Suspect]
     Indication: METASTATIC MALIGNANT MELANOMA
     Dosage: 987 IV EVERY 3 WKS D3
     Route: 042
     Dates: start: 20130508

REACTIONS (7)
  - Pyrexia [None]
  - Nausea [None]
  - Fatigue [None]
  - Hypothyroidism [None]
  - Hyperthyroidism [None]
  - Vomiting [None]
  - Diarrhoea [None]
